FAERS Safety Report 13948104 (Version 3)
Quarter: 2017Q4

REPORT INFORMATION
  Report Type: Spontaneous
  Country: JP (occurrence: JP)
  Receive Date: 20170908
  Receipt Date: 20171002
  Transmission Date: 20180320
  Serious: Yes (Life-Threatening, Other)
  Sender: FDA-Public Use
  Company Number: JP-ROCHE-1964950

PATIENT
  Age: 40 Year
  Sex: Female
  Weight: 56 kg

DRUGS (9)
  1. CARBOPLATIN. [Suspect]
     Active Substance: CARBOPLATIN
     Indication: NON-SMALL CELL LUNG CANCER
     Route: 041
     Dates: start: 20170420, end: 20170628
  2. OXYCONTIN [Concomitant]
     Active Substance: OXYCODONE HYDROCHLORIDE
     Dosage: DOSAGE IS UNCERTAIN.
     Route: 065
     Dates: start: 20170405
  3. AVASTIN [Suspect]
     Active Substance: BEVACIZUMAB
     Indication: NON-SMALL CELL LUNG CANCER
     Dosage: TREATMENT LINE 1ST
     Route: 041
     Dates: start: 20170420, end: 20170628
  4. PACLITAXEL. [Suspect]
     Active Substance: PACLITAXEL
     Indication: NON-SMALL CELL LUNG CANCER
     Route: 041
     Dates: start: 20170420, end: 20170628
  5. LANSOPRAZOLE. [Concomitant]
     Active Substance: LANSOPRAZOLE
     Dosage: DOSAGE IS UNCERTAIN.
     Route: 065
  6. LYRICA [Concomitant]
     Active Substance: PREGABALIN
     Dosage: DOSAGE IS UNCERTAIN.
     Route: 065
     Dates: start: 20170404
  7. DENOTAS [Concomitant]
     Active Substance: CALCIUM CARBONATE\CHOLECALCIFEROL\MAGNESIUM CARBONATE
     Dosage: DOSAGE IS UNCERTAIN.
     Route: 048
     Dates: start: 20170406
  8. PROGRAF [Concomitant]
     Active Substance: TACROLIMUS\TACROLIMUS ANHYDROUS
     Route: 065
  9. MOBIC [Concomitant]
     Active Substance: MELOXICAM
     Dosage: DOSAGE IS UNCERTAIN.
     Route: 065
     Dates: start: 20170419

REACTIONS (4)
  - Ovarian germ cell teratoma benign [Unknown]
  - Large intestine perforation [Recovered/Resolved]
  - Ileus [Unknown]
  - Immunosuppression [Unknown]

NARRATIVE: CASE EVENT DATE: 20170705
